FAERS Safety Report 13689260 (Version 1)
Quarter: 2017Q2

REPORT INFORMATION
  Report Type: Spontaneous
  Country: IE (occurrence: US)
  Receive Date: 20170625
  Receipt Date: 20170625
  Transmission Date: 20170830
  Serious: Yes (Hospitalization, Disabling, Other)
  Sender: FDA-Public Use
  Company Number: None

PATIENT
  Age: 59 Year
  Sex: Female
  Weight: 33.75 kg

DRUGS (5)
  1. VIT B [Concomitant]
     Active Substance: VITAMIN B
  2. VALIUM [Suspect]
     Active Substance: DIAZEPAM
     Indication: INSOMNIA
     Route: 048
  3. TEMAZEPAM. [Suspect]
     Active Substance: TEMAZEPAM
  4. FISH OIL [Concomitant]
     Active Substance: FISH OIL
  5. VALIUM [Suspect]
     Active Substance: DIAZEPAM
     Indication: MUSCLE RELAXANT THERAPY
     Route: 048

REACTIONS (7)
  - Therapy cessation [None]
  - Seizure [None]
  - Condition aggravated [None]
  - General symptom [None]
  - Neurotoxicity [None]
  - Muscle rigidity [None]
  - Spinal cord disorder [None]

NARRATIVE: CASE EVENT DATE: 20090313
